FAERS Safety Report 21223449 (Version 1)
Quarter: 2022Q3

REPORT INFORMATION
  Report Type: Spontaneous
  Country: DE (occurrence: DE)
  Receive Date: 20220817
  Receipt Date: 20220817
  Transmission Date: 20221027
  Serious: Yes (Life-Threatening, Disabling)
  Sender: FDA-Public Use
  Company Number: None

PATIENT
  Age: 73 Year
  Sex: Female
  Weight: 53 kg

DRUGS (10)
  1. TAMOXIFEN [Suspect]
     Active Substance: TAMOXIFEN
     Indication: Breast cancer female
     Dosage: DURATION : 4 MONTHS
     Route: 065
     Dates: end: 20211022
  2. TAMOXIFEN [Suspect]
     Active Substance: TAMOXIFEN
     Dosage: DURATION : 4 MONTHS, UNIT DOSE : 20MG
     Route: 065
     Dates: start: 20210703
  3. EXEMESTANE [Suspect]
     Active Substance: EXEMESTANE
     Indication: Breast cancer female
     Dosage: DURATION : 5 DAYS
     Route: 065
     Dates: start: 20210615, end: 20210702
  4. COMIRNATY [Suspect]
     Active Substance: TOZINAMERAN
     Indication: COVID-19 immunisation
     Dosage: 3 VACCINATIONS IN TOTAL
     Route: 065
     Dates: start: 20210328
  5. COMIRNATY [Suspect]
     Active Substance: TOZINAMERAN
     Indication: Immunisation
     Dosage: UNIT DOSE : 1 DOSAGE FORM
     Route: 065
     Dates: start: 20210505, end: 20210505
  6. COMIRNATY [Suspect]
     Active Substance: TOZINAMERAN
     Dosage: UNIT DOSE : 1 DOSAGE FORM
     Route: 065
     Dates: start: 20211216, end: 20211216
  7. COMIRNATY [Suspect]
     Active Substance: TOZINAMERAN
     Dosage: UNIT DOSE : 1 DOSAGE FORM , 3 VACCINATIONS IN TOTAL
     Route: 065
     Dates: start: 20210324, end: 20210324
  8. VARICELLA-ZOSTER VACCINE NOS [Suspect]
     Active Substance: VARICELLA-ZOSTER VACCINE
     Indication: Product used for unknown indication
     Dosage: UNIT DOSE : 1 DOSAGE FORM
     Route: 065
     Dates: start: 20210706, end: 20210706
  9. VARICELLA-ZOSTER VACCINE NOS [Suspect]
     Active Substance: VARICELLA-ZOSTER VACCINE
     Dosage: UNIT DOSE : 1 DOSAGE FORM
     Route: 065
     Dates: start: 20210920, end: 20210920
  10. INFLUENZA VIRUS VACCINE [Suspect]
     Active Substance: INFLUENZA VIRUS VACCINE
     Indication: Product used for unknown indication
     Dosage: UNIT DOSE : 1 DOSAGE FORM
     Route: 065
     Dates: start: 20211108, end: 20211108

REACTIONS (15)
  - Road traffic accident [Recovered/Resolved with Sequelae]
  - Bone pain [Not Recovered/Not Resolved]
  - Musculoskeletal pain [Recovered/Resolved with Sequelae]
  - Dizziness [Not Recovered/Not Resolved]
  - Muscle spasms [Not Recovered/Not Resolved]
  - Dental implantation [Unknown]
  - Fatigue [Not Recovered/Not Resolved]
  - Asthenia [Not Recovered/Not Resolved]
  - Pain in extremity [Not Recovered/Not Resolved]
  - Hot flush [Not Recovered/Not Resolved]
  - Hyperhidrosis [Not Recovered/Not Resolved]
  - Urinary incontinence [Not Recovered/Not Resolved]
  - Disturbance in attention [Not Recovered/Not Resolved]
  - Abdominal discomfort [Not Recovered/Not Resolved]
  - Mobility decreased [Not Recovered/Not Resolved]

NARRATIVE: CASE EVENT DATE: 20211005
